FAERS Safety Report 23252346 (Version 1)
Quarter: 2023Q4

REPORT INFORMATION
  Report Type: Spontaneous
  Country: FR (occurrence: None)
  Receive Date: 20231201
  Receipt Date: 20231201
  Transmission Date: 20240110
  Serious: Yes (Hospitalization)
  Sender: FDA-Public Use
  Company Number: 2023A267593

PATIENT
  Age: 57 Year
  Sex: Female
  Weight: 49.3 kg

DRUGS (14)
  1. FULVESTRANT [Suspect]
     Active Substance: FULVESTRANT
     Indication: Hormone receptor positive breast cancer
     Route: 030
     Dates: start: 20230928
  2. KISQALI [Suspect]
     Active Substance: RIBOCICLIB
     Indication: Hormone receptor positive breast cancer
     Route: 048
     Dates: start: 20230928, end: 20231013
  3. BACTRIM [Suspect]
     Active Substance: SULFAMETHOXAZOLE\TRIMETHOPRIM
     Indication: Organising pneumonia
     Route: 030
     Dates: start: 20230922, end: 20231013
  4. CALCIUM CARBONATE\CHOLECALCIFEROL [Concomitant]
     Active Substance: CALCIUM CARBONATE\CHOLECALCIFEROL
  5. ACETAMINOPHEN [Concomitant]
     Active Substance: ACETAMINOPHEN
  6. MINERAL OIL [Concomitant]
     Active Substance: MINERAL OIL
  7. METOPIMAZINE [Concomitant]
     Active Substance: METOPIMAZINE
  8. RACECADOTRIL [Concomitant]
     Active Substance: RACECADOTRIL
  9. MORPHINE SULFATE [Concomitant]
     Active Substance: MORPHINE SULFATE
  10. SOLUPRED [Concomitant]
  11. LOPERAMIDE HYDROCHLORIDE [Concomitant]
     Active Substance: LOPERAMIDE HYDROCHLORIDE
  12. PANTOPRAZOLE [Concomitant]
     Active Substance: PANTOPRAZOLE
  13. POLYETHYLENE GLYCOL 4000 [Concomitant]
     Active Substance: POLYETHYLENE GLYCOL 4000
  14. DEXERYL [Concomitant]

REACTIONS (2)
  - Bicytopenia [Recovered/Resolved]
  - Hepatic cytolysis [Recovering/Resolving]

NARRATIVE: CASE EVENT DATE: 20231013
